FAERS Safety Report 9785416 (Version 1)
Quarter: 2013Q4

REPORT INFORMATION
  Report Type: Spontaneous
  Country: None (occurrence: None)
  Receive Date: 20131223
  Receipt Date: 20131223
  Transmission Date: 20140711
  Serious: Yes (Other)
  Sender: FDA-Public Use
  Company Number: EUS-2013-00737

PATIENT
  Age: 14 Year
  Sex: Female

DRUGS (2)
  1. ASPARAGINASE [Suspect]
     Indication: ACUTE LYMPHOCYTIC LEUKAEMIA
     Dosage: (50002U/M2 QOD, 8 TIMES),INTRAVENOUS (NOT OTHERWISE SPECIFIED)
     Route: 042
  2. DEXAMETHASONE [Suspect]
     Indication: ACUTE LYMPHOCYTIC LEUKAEMIA
     Dosage: (10 MG/M2,1 DAYS)

REACTIONS (5)
  - Hyperglycaemia [None]
  - Dyspepsia [None]
  - Polydipsia [None]
  - Polyuria [None]
  - Paraesthesia [None]
